FAERS Safety Report 9524889 (Version 1)
Quarter: 2013Q3

REPORT INFORMATION
  Report Type: Spontaneous
  Country: US (occurrence: None)
  Receive Date: 20130912
  Receipt Date: 20130912
  Transmission Date: 20140515
  Serious: Yes (Hospitalization, Other)
  Sender: FDA-Public Use
  Company Number: 2013P1018987

PATIENT
  Age: 37 Year
  Sex: Female

DRUGS (3)
  1. METHIMAZOLE [Suspect]
     Indication: HYPERTHYROIDISM
     Dosage: 4 TO 5 WEEKS
  2. PROPYLTHIOURACIL [Suspect]
     Indication: HYPERTHYROIDISM
  3. ATENOLOL [Concomitant]

REACTIONS (13)
  - Pruritus generalised [None]
  - Excoriation [None]
  - Maternal exposure during pregnancy [None]
  - Systemic inflammatory response syndrome [None]
  - Sepsis [None]
  - Ecthyma [None]
  - Staphylococcal skin infection [None]
  - Basedow^s disease [None]
  - Abortion spontaneous [None]
  - Agranulocytosis [None]
  - Pyrexia [None]
  - Oropharyngeal pain [None]
  - Superinfection [None]
